FAERS Safety Report 9228753 (Version 2)
Quarter: 2013Q2

REPORT INFORMATION
  Report Type: Spontaneous
  Country: BR (occurrence: BR)
  Receive Date: 20130412
  Receipt Date: 20130507
  Transmission Date: 20140414
  Serious: Yes (Death, Other)
  Sender: FDA-Public Use
  Company Number: BR-PFIZER INC-2013115819

PATIENT
  Age: 67 Year
  Sex: Female

DRUGS (1)
  1. LYRICA [Suspect]
     Indication: PLASMA CELL MYELOMA
     Dosage: 75 MG, 1X/DAY
     Route: 048
     Dates: start: 20121211

REACTIONS (3)
  - Plasma cell myeloma [Fatal]
  - Pancreatitis [Fatal]
  - Off label use [Unknown]
